FAERS Safety Report 5531422-3 (Version None)
Quarter: 2007Q4

REPORT INFORMATION
  Report Type: 
  Country: None (occurrence: None)
  Receive Date: 20071128
  Receipt Date: 20071113
  Transmission Date: 20080405
  Serious: Yes (Other)
  Sender: FDA-Public Use
  Company Number: 2007002227

PATIENT
  Age: 59 Year
  Sex: Male

DRUGS (7)
  1. TARCEVA [Suspect]
     Dosage: 150 MG, QD, ORAL
     Route: 048
  2. BISOPROLOL FUMARATE [Concomitant]
  3. CITALOPRAM HYDROBROMIDE [Concomitant]
  4. LANSOPRAZOLE [Concomitant]
  5. AVELOX [Concomitant]
  6. THEOPHYLLINE [Concomitant]
  7. MIRTAZAPINE [Concomitant]

REACTIONS (6)
  - ASTHENIA [None]
  - COAGULATION TIME PROLONGED [None]
  - DIARRHOEA [None]
  - MOUTH ULCERATION [None]
  - MUSCLE SPASTICITY [None]
  - RASH VESICULAR [None]
